FAERS Safety Report 5507027-7 (Version None)
Quarter: 2007Q4

REPORT INFORMATION
  Report Type: 
  Country: None (occurrence: None)
  Receive Date: 20071105
  Receipt Date: 20071029
  Transmission Date: 20080405
  Serious: Yes (Death, Hospitalization)
  Sender: FDA-Public Use
  Company Number: MY-BOEHRINGER INGELHEIM PHARMACEUTICALS, INC.-2007-UK-00770UK

PATIENT
  Sex: Female
  Weight: 55 kg

DRUGS (6)
  1. MICARDIS [Suspect]
     Indication: CEREBROVASCULAR ACCIDENT PROPHYLAXIS
     Route: 048
     Dates: start: 20041228, end: 20070312
  2. AGGRENOX [Suspect]
     Indication: CEREBROVASCULAR ACCIDENT PROPHYLAXIS
     Route: 048
     Dates: start: 20041228, end: 20070316
  3. CLOPIDOGREL [Suspect]
     Indication: CEREBROVASCULAR ACCIDENT PROPHYLAXIS
     Route: 048
     Dates: start: 20041228, end: 20070316
  4. CLOXACILLIA [Concomitant]
     Indication: SEPSIS
     Route: 042
     Dates: start: 20070412, end: 20070525
  5. TAZOCIN [Concomitant]
     Indication: SEPSIS
     Route: 042
     Dates: start: 20070409, end: 20070411
  6. FORTUM [Concomitant]
     Indication: SEPSIS
     Route: 042
     Dates: start: 20070417, end: 20070425

REACTIONS (4)
  - DUODENAL ULCER [None]
  - RENAL FAILURE ACUTE [None]
  - RENAL FAILURE CHRONIC [None]
  - SEPSIS [None]
